FAERS Safety Report 9964220 (Version 5)
Quarter: 2015Q2

REPORT INFORMATION
  Report Type: Report from Study
  Country: AU (occurrence: AU)
  Receive Date: 20140305
  Receipt Date: 20150413
  Transmission Date: 20150821
  Serious: Yes (Hospitalization, Disabling, Other)
  Sender: FDA-Public Use
  Company Number: PHHY2014AU007840

PATIENT
  Age: 56 Year
  Sex: Female

DRUGS (11)
  1. CLOZARIL [Suspect]
     Active Substance: CLOZAPINE
     Indication: SCHIZOAFFECTIVE DISORDER
     Dosage: 150 MG, QD (NOCTE)
     Route: 048
     Dates: start: 20120713
  2. OLANZAPINE. [Concomitant]
     Active Substance: OLANZAPINE
     Indication: PRODUCT USED FOR UNKNOWN INDICATION
     Dosage: 405 MG, 2 WEEKLY
     Route: 030
     Dates: start: 20150120
  3. PALIPERIDONE [Concomitant]
     Active Substance: PALIPERIDONE
     Dosage: 75 MG, 4/52
     Route: 030
     Dates: start: 201407, end: 20150120
  4. CLOZARIL [Suspect]
     Active Substance: CLOZAPINE
     Indication: SCHIZOPHRENIA
     Dosage: 100 (UNIT UNSPECIFIED)
     Route: 048
     Dates: start: 19960613
  5. CLOZARIL [Suspect]
     Active Substance: CLOZAPINE
     Dosage: UNK
     Route: 048
     Dates: start: 20140106
  6. CLOZARIL [Suspect]
     Active Substance: CLOZAPINE
     Dosage: 100 MG, UNK
     Route: 048
     Dates: start: 201406
  7. CLOZARIL [Suspect]
     Active Substance: CLOZAPINE
     Dosage: REDUCED DOSE
     Route: 048
  8. CLOZARIL [Suspect]
     Active Substance: CLOZAPINE
     Dosage: 25 MG, QD
     Route: 048
     Dates: start: 201408, end: 20150129
  9. PALIPERIDONE [Concomitant]
     Active Substance: PALIPERIDONE
     Indication: SCHIZOPHRENIA
     Dosage: 150 MG, 4/52 (4 WEEKLY)
     Route: 030
     Dates: start: 20121006
  10. PALIPERIDONE [Concomitant]
     Active Substance: PALIPERIDONE
     Dosage: 100 MG, 4/52
     Route: 030
     Dates: start: 201405
  11. DOCUSATE W/SENNA [Concomitant]
     Indication: CONSTIPATION
     Dosage: DOCUSATE/ SENNA (50/8), BID (PRN)
     Route: 048

REACTIONS (13)
  - Sedation [Recovering/Resolving]
  - Feeling abnormal [Recovering/Resolving]
  - Agitation [Recovering/Resolving]
  - Schizophrenia [Recovering/Resolving]
  - Poisoning [Unknown]
  - Paranoia [Not Recovered/Not Resolved]
  - Hypertension [Recovering/Resolving]
  - Mental impairment [Unknown]
  - Anosognosia [Unknown]
  - Aggression [Not Recovered/Not Resolved]
  - Antipsychotic drug level below therapeutic [Unknown]
  - Abnormal behaviour [Unknown]
  - Delusion [Recovering/Resolving]

NARRATIVE: CASE EVENT DATE: 20131028
